FAERS Safety Report 10057134 (Version 1)
Quarter: 2014Q2

REPORT INFORMATION
  Report Type: Spontaneous
  Country: US (occurrence: US)
  Receive Date: 20140403
  Receipt Date: 20140403
  Transmission Date: 20141212
  Serious: Yes (Other)
  Sender: FDA-Public Use
  Company Number: US-009507513-1403USA014286

PATIENT
  Sex: Female

DRUGS (1)
  1. JANUVIA [Suspect]
     Dosage: UNK
     Route: 048
     Dates: start: 201309

REACTIONS (5)
  - Hypersensitivity [Unknown]
  - Gallbladder operation [Unknown]
  - Sleep disorder [Unknown]
  - Abdominal pain upper [Unknown]
  - Dyspepsia [Unknown]
